FAERS Safety Report 6437500-9 (Version None)
Quarter: 2009Q4

REPORT INFORMATION
  Report Type: 
  Country: None (occurrence: None)
  Receive Date: 20091112
  Receipt Date: 20091101
  Transmission Date: 20100525
  Serious: Yes (Hospitalization, Other)
  Sender: FDA-Public Use
  Company Number: AT-ELI_LILLY_AND_COMPANY-AT200909007065

PATIENT
  Age: 46 Year
  Sex: Female

DRUGS (4)
  1. ZYPREXA [Suspect]
     Dates: start: 20010101
  2. HOMEOPATIC PREPARATION [Concomitant]
  3. PIPORTIL DEPOT [Concomitant]
  4. MAGNESIUM [Concomitant]

REACTIONS (19)
  - ADVERSE DRUG REACTION [None]
  - ANAEMIA [None]
  - BLOOD IRON DECREASED [None]
  - BLOOD PROLACTIN INCREASED [None]
  - DELUSION [None]
  - ENDOMETRIAL HYPERPLASIA [None]
  - FEELING ABNORMAL [None]
  - FLUID RETENTION [None]
  - GALACTORRHOEA [None]
  - HEART RATE IRREGULAR [None]
  - HYPOTENSION [None]
  - LACRIMAL DISORDER [None]
  - MENORRHAGIA [None]
  - ORGAN FAILURE [None]
  - PARANOIA [None]
  - RED BLOOD CELL COUNT DECREASED [None]
  - SOMATOFORM DISORDER PREGNANCY [None]
  - VISUAL IMPAIRMENT [None]
  - WEIGHT INCREASED [None]
